FAERS Safety Report 15606172 (Version 1)
Quarter: 2018Q4

REPORT INFORMATION
  Report Type: Spontaneous
  Country: GB (occurrence: GB)
  Receive Date: 20181112
  Receipt Date: 20181112
  Transmission Date: 20190205
  Serious: Yes (Hospitalization)
  Sender: FDA-Public Use
  Company Number: GB-ACCORD-091500

PATIENT
  Age: 66 Year
  Sex: Male

DRUGS (10)
  1. ATORVASTATIN [Concomitant]
     Active Substance: ATORVASTATIN
  2. LEVOTHYROXINE. [Concomitant]
     Active Substance: LEVOTHYROXINE
  3. LANSOPRAZOLE. [Concomitant]
     Active Substance: LANSOPRAZOLE
  4. FOLIC ACID. [Concomitant]
     Active Substance: FOLIC ACID
     Dosage: USUALLY TAKES ON A SATURDAY BUT LAST HAD ON SUNDAY.
  5. SILDENAFIL. [Concomitant]
     Active Substance: SILDENAFIL
  6. LEFLUNOMIDE. [Concomitant]
     Active Substance: LEFLUNOMIDE
     Dosage: AS DIRECTED
  7. PREDNISOLONE. [Concomitant]
     Active Substance: PREDNISOLONE
     Dosage: TAKE 3 EACH MORN FOR 2 WEEKS, THEN 2 FOR 2 WEEKS THEN 1, THEN STOP.
  8. AMLODIPINE [Concomitant]
     Active Substance: AMLODIPINE BESYLATE
  9. METHOTREXATE. [Suspect]
     Active Substance: METHOTREXATE
     Indication: RHEUMATOID ARTHRITIS
     Dosage: USUALLY TAKES THURSDAY BUT LAST HAD LAST FRIDAY.
  10. ACETYLSALICYLIC ACID [Concomitant]
     Active Substance: ASPIRIN

REACTIONS (2)
  - Pulmonary toxicity [Recovered/Resolved]
  - Sepsis [Unknown]
